FAERS Safety Report 13384472 (Version 1)
Quarter: 2017Q1

REPORT INFORMATION
  Report Type: Spontaneous
  Country: US (occurrence: US)
  Receive Date: 20170329
  Receipt Date: 20170329
  Transmission Date: 20170429
  Serious: Yes (Hospitalization)
  Sender: FDA-Public Use
  Company Number: None

PATIENT
  Age: 75 Year
  Sex: Male

DRUGS (1)
  1. APIXABAN [Suspect]
     Active Substance: APIXABAN
     Indication: ATRIAL FIBRILLATION
     Route: 048
     Dates: start: 20161219

REACTIONS (4)
  - Oesophageal rupture [None]
  - Pneumothorax [None]
  - Tooth extraction [None]
  - Blood pressure increased [None]

NARRATIVE: CASE EVENT DATE: 20170119
